FAERS Safety Report 16946956 (Version 2)
Quarter: 2019Q4

REPORT INFORMATION
  Report Type: Spontaneous
  Country: LT (occurrence: LT)
  Receive Date: 20191022
  Receipt Date: 20191112
  Transmission Date: 20200122
  Serious: Yes (Hospitalization, Other)
  Sender: FDA-Public Use
  Company Number: LT-ABBVIE-19K-234-2968102-00

PATIENT
  Age: 15 Year
  Sex: Male
  Weight: 59.7 kg

DRUGS (4)
  1. HUMIRA [Suspect]
     Active Substance: ADALIMUMAB
     Indication: CROHN^S DISEASE
     Route: 058
     Dates: start: 201811, end: 2019
  2. HUMIRA [Suspect]
     Active Substance: ADALIMUMAB
     Route: 058
     Dates: start: 2019, end: 201910
  3. PREDNISOLONE. [Concomitant]
     Active Substance: PREDNISOLONE
     Indication: PRODUCT USED FOR UNKNOWN INDICATION
     Route: 048
  4. DICLOFENAC [Concomitant]
     Active Substance: DICLOFENAC
     Indication: ARTHRITIS REACTIVE

REACTIONS (10)
  - Joint swelling [Unknown]
  - Diarrhoea [Unknown]
  - Crohn^s disease [Unknown]
  - Body temperature abnormal [Unknown]
  - Nasal septum disorder [Unknown]
  - Vasculitis [Unknown]
  - Colitis [Unknown]
  - Therapeutic product effect decreased [Unknown]
  - Skin striae [Unknown]
  - Malnutrition [Unknown]
